FAERS Safety Report 6883442-4 (Version None)
Quarter: 2010Q3

REPORT INFORMATION
  Report Type: 
  Country: None (occurrence: None)
  Receive Date: 20100729
  Receipt Date: 20100719
  Transmission Date: 20110219
  Serious: Yes (Hospitalization)
  Sender: FDA-Public Use
  Company Number: GXKR2010AU08016

PATIENT
  Age: 88 Year
  Sex: Female

DRUGS (1)
  1. ACETYLSALICYLIC ACID SRT [Suspect]
     Indication: ATRIAL FIBRILLATION
     Route: 065

REACTIONS (6)
  - BACK PAIN [None]
  - EXTRADURAL HAEMATOMA [None]
  - HYPOREFLEXIA [None]
  - MONOPARESIS [None]
  - SPINAL LAMINECTOMY [None]
  - URINARY INCONTINENCE [None]
